FAERS Safety Report 4963955-2 (Version None)
Quarter: 2006Q2

REPORT INFORMATION
  Report Type: 
  Country: None (occurrence: None)
  Receive Date: 20060405
  Receipt Date: 20030605
  Transmission Date: 20061013
  Serious: Yes (Hospitalization, Disabling)
  Sender: FDA-Public Use
  Company Number: US-MERCK-0306USA00838

PATIENT
  Sex: Female
  Weight: 82 kg

DRUGS (1)
  1. VIOXX [Suspect]
     Indication: ARTHRALGIA
     Route: 048
     Dates: start: 20000619, end: 20010421

REACTIONS (10)
  - ARRHYTHMIA [None]
  - ARTHRALGIA [None]
  - ARTHROPATHY [None]
  - CHEST PAIN [None]
  - HEADACHE [None]
  - HYPERTENSION [None]
  - OVERDOSE [None]
  - POLYTRAUMATISM [None]
  - SWELLING [None]
  - VISION BLURRED [None]
